FAERS Safety Report 22376049 (Version 1)
Quarter: 2023Q2

REPORT INFORMATION
  Report Type: Spontaneous
  Country: CA (occurrence: CA)
  Receive Date: 20230527
  Receipt Date: 20230527
  Transmission Date: 20230722
  Serious: Yes (Hospitalization)
  Sender: FDA-Public Use
  Company Number: None

PATIENT
  Age: 77 Year
  Sex: Male
  Weight: 97 kg

DRUGS (18)
  1. FLUOROURACIL [Suspect]
     Active Substance: FLUOROURACIL
     Indication: Colorectal cancer
     Dosage: SOLUTION INTRAVENOUS, INTRAVENOUS DRIP, 1 EVERY 14 DAYS
  2. IRINOTECAN HYDROCHLORIDE [Suspect]
     Active Substance: IRINOTECAN HYDROCHLORIDE
     Indication: Colorectal cancer
     Dosage: SOLUTION INTRAVENOUS, INTRAVENOUS DRIP, 1 EVERY 14 DAYS
  3. ALLOPURINOL [Concomitant]
     Active Substance: ALLOPURINOL
  4. CANDESARTAN [Concomitant]
     Active Substance: CANDESARTAN
  5. CYANOCOBALAMIN [Concomitant]
     Active Substance: CYANOCOBALAMIN
  6. DEXAMETHASONE [Concomitant]
     Active Substance: DEXAMETHASONE
     Dosage: LIQUID INTRA- ARTICULAR
  7. DILTIAZEM [Concomitant]
     Active Substance: DILTIAZEM
  8. ELIQUIS [Concomitant]
     Active Substance: APIXABAN
  9. EZETIMIBE [Concomitant]
     Active Substance: EZETIMIBE
  10. FUROSEMIDE [Concomitant]
     Active Substance: FUROSEMIDE
  11. GLYBURIDE [Concomitant]
     Active Substance: GLYBURIDE
  12. LEUCOVORIN [Concomitant]
     Active Substance: LEUCOVORIN
  13. LOPERAMIDE [Concomitant]
     Active Substance: LOPERAMIDE
  14. MAGNESIUM OXIDE [Concomitant]
     Active Substance: MAGNESIUM OXIDE
  15. METFORMIN [Concomitant]
     Active Substance: METFORMIN HYDROCHLORIDE
  16. ONGLYZA [Concomitant]
     Active Substance: SAXAGLIPTIN HYDROCHLORIDE
     Dosage: FILM-COATED
  17. PANTOPRAZOLE [Concomitant]
     Active Substance: PANTOPRAZOLE
     Dosage: POWDER FOR SOLUTION INTRAVENOUS
  18. FLUOROURACIL [Suspect]
     Active Substance: FLUOROURACIL
     Indication: Colorectal cancer
     Dosage: SOLUTION INTRAVENOUS, INTRAVENOUS BOLUS

REACTIONS (1)
  - Febrile neutropenia [Recovered/Resolved]
